FAERS Safety Report 19409558 (Version 2)
Quarter: 2025Q1

REPORT INFORMATION
  Report Type: Spontaneous
  Country: US (occurrence: US)
  Receive Date: 20210614
  Receipt Date: 20250207
  Transmission Date: 20250408
  Serious: Yes (Death, Hospitalization, Other)
  Sender: PURDUE
  Company Number: US-PURDUE-USA-2020-0216896

PATIENT
  Sex: Female

DRUGS (2)
  1. OXYCONTIN [Suspect]
     Active Substance: OXYCODONE HYDROCHLORIDE
     Indication: Product used for unknown indication
     Route: 048
  2. OXYCODONE HYDROCHLORIDE [Suspect]
     Active Substance: OXYCODONE HYDROCHLORIDE
     Indication: Product used for unknown indication
     Route: 048

REACTIONS (3)
  - Overdose [Fatal]
  - Drug dependence [Fatal]
  - Near death experience [Unknown]
